APPROVED DRUG PRODUCT: PULMICORT
Active Ingredient: BUDESONIDE
Strength: 0.16MG/INH
Dosage Form/Route: POWDER, METERED;INHALATION
Application: N020441 | Product #002
Applicant: ASTRAZENECA PHARMACEUTICALS LP
Approved: Jun 24, 1997 | RLD: No | RS: No | Type: DISCN